FAERS Safety Report 8394923 (Version 2)
Quarter: 2013Q1

REPORT INFORMATION
  Report Type: Spontaneous
  Country: US (occurrence: US)
  Receive Date: 20120208
  Receipt Date: 20130128
  Transmission Date: 20140127
  Serious: Yes (Hospitalization, Other)
  Sender: FDA-Public Use
  Company Number: US-BAYER-2012-011029

PATIENT
  Age: 19 Year
  Sex: Female
  Weight: 42.18 kg

DRUGS (10)
  1. YAZ [Suspect]
     Indication: CONTRACEPTION
     Dosage: UNK
     Dates: start: 200710, end: 200909
  2. YAZ [Suspect]
     Indication: PREMENSTRUAL DYSPHORIC DISORDER
  3. YAZ [Suspect]
     Indication: MENSTRUAL CYCLE MANAGEMENT
  4. AMOXICILLIN [Concomitant]
     Dosage: 500 MG, UNK
     Route: 048
     Dates: start: 20080826
  5. PENICILLIN VK [Concomitant]
     Dosage: 500 MG, UNK
     Route: 048
     Dates: start: 20080829
  6. HYDROCODONE W/ACETAMINOPHEN [Concomitant]
     Dosage: 10/500
     Route: 048
     Dates: start: 20080829
  7. NECON [Concomitant]
     Dosage: 777/28
     Route: 048
     Dates: start: 20100802
  8. NAPROXEN [Concomitant]
     Dosage: 500 MG, UNK
     Route: 048
     Dates: start: 20100809
  9. PRILOSEC [Concomitant]
  10. MAALOX [Concomitant]

REACTIONS (9)
  - Cholecystitis chronic [None]
  - Cholecystitis chronic [None]
  - Nephrolithiasis [None]
  - Pyelonephritis [None]
  - Hydronephrosis [None]
  - Injury [None]
  - Hepatobiliary scan abnormal [None]
  - Emotional distress [None]
  - Pain [None]
